FAERS Safety Report 23310699 (Version 1)
Quarter: 2023Q4

REPORT INFORMATION
  Report Type: Spontaneous
  Country: ES (occurrence: ES)
  Receive Date: 20231218
  Receipt Date: 20231218
  Transmission Date: 20240110
  Serious: Yes (Other)
  Sender: FDA-Public Use
  Company Number: None

PATIENT
  Age: 34 Year
  Sex: Male
  Weight: 70 kg

DRUGS (2)
  1. SPRAVATO [Suspect]
     Active Substance: ESKETAMINE
     Indication: Major depression
     Dates: start: 20220201, end: 2022
  2. KETAMINE [Suspect]
     Active Substance: KETAMINE
     Indication: Major depression
     Dosage: THE DOSAGE IN THE CLINICAL HISTORY (INTRAVENOUS KETAMINE AND INTRANASAL ESKETAMINE SESSIONS)
     Route: 042
     Dates: start: 20220201, end: 20220801

REACTIONS (1)
  - Drug dependence [Not Recovered/Not Resolved]

NARRATIVE: CASE EVENT DATE: 20230701
